FAERS Safety Report 8437511-8 (Version None)
Quarter: 2012Q2

REPORT INFORMATION
  Report Type: 
  Country: None (occurrence: None)
  Receive Date: 20120614
  Receipt Date: 20120416
  Transmission Date: 20120825
  Serious: No
  Sender: FDA-Public Use
  Company Number: US-AMGEN-USASP2012019520

PATIENT
  Age: 84 Year
  Sex: Female

DRUGS (9)
  1. ASACOL [Concomitant]
     Dosage: 1 DF, QD
  2. ACIPHEX [Concomitant]
  3. MULTI-VITAMINS [Concomitant]
  4. VITAMIN D [Concomitant]
  5. PROLIA [Suspect]
     Indication: OSTEOPOROSIS POSTMENOPAUSAL
     Dosage: UNK UNK, Q6MO
     Dates: start: 20120307
  6. CITRICAL D [Concomitant]
  7. ASACOL [Concomitant]
  8. LIPITOR [Concomitant]
  9. PEPCID AC [Concomitant]

REACTIONS (7)
  - GINGIVAL BLEEDING [None]
  - STOMATITIS [None]
  - ASTHENIA [None]
  - TOOTHACHE [None]
  - INFLUENZA [None]
  - GINGIVAL PAIN [None]
  - COLITIS ULCERATIVE [None]
